FAERS Safety Report 5017632-2 (Version None)
Quarter: 2006Q2

REPORT INFORMATION
  Report Type: 
  Country: None (occurrence: None)
  Receive Date: 20060605
  Receipt Date: 20060502
  Transmission Date: 20061013
  Serious: No
  Sender: FDA-Public Use
  Company Number: JP-RB-3211-2006

PATIENT
  Sex: Male

DRUGS (13)
  1. BUPRENORPHINE HCL [Suspect]
     Indication: CANCER PAIN
     Route: 054
     Dates: start: 20060410, end: 20060413
  2. BUPRENORPHINE HCL [Suspect]
     Route: 054
     Dates: start: 20060414, end: 20060416
  3. MORPHINE SULFATE [Suspect]
     Indication: CANCER PAIN
     Route: 048
     Dates: start: 20060213, end: 20060320
  4. MORPHINE SULFATE [Suspect]
     Route: 048
     Dates: start: 20060321, end: 20060413
  5. MORPHINE SULFATE [Suspect]
     Route: 048
     Dates: start: 20060414
  6. DOMPERIDONE [Concomitant]
     Route: 048
     Dates: start: 20060213
  7. FAMOTIDINE [Concomitant]
     Route: 048
     Dates: start: 20060213
  8. ACETAMINOPHEN [Concomitant]
     Indication: PAIN
     Route: 048
     Dates: start: 20060213
  9. FERROUS CITRATE [Concomitant]
     Indication: ANAEMIA
     Route: 048
     Dates: start: 20060213
  10. ETIZOLAM [Concomitant]
     Indication: INSOMNIA
     Route: 048
     Dates: start: 20060213
  11. ESTAZOLAM [Concomitant]
     Indication: INSOMNIA
     Route: 048
     Dates: start: 20060213
  12. MORPHINE SULFATE [Concomitant]
     Indication: DRUG USE FOR UNKNOWN INDICATION
     Dosage: DOSAGE UNKNOWN
     Route: 048
  13. MORPHINE [Concomitant]
     Indication: CANCER PAIN
     Dosage: DOSAGE UNKNOWN
     Route: 048
     Dates: start: 20060307

REACTIONS (1)
  - HALLUCINATION [None]
